FAERS Safety Report 17562336 (Version 6)
Quarter: 2020Q4

REPORT INFORMATION
  Report Type: Spontaneous
  Country: US (occurrence: US)
  Receive Date: 20200319
  Receipt Date: 20201106
  Transmission Date: 20210113
  Serious: Yes (Hospitalization)
  Sender: FDA-Public Use
  Company Number: US-CELGENEUS-USA-20200305511

PATIENT
  Age: 85 Year
  Sex: Female
  Weight: 59.93 kg

DRUGS (3)
  1. THALOMID [Suspect]
     Active Substance: THALIDOMIDE
     Dosage: 50 MILLIGRAM
     Route: 048
     Dates: start: 2020
  2. ELIQUIS [Concomitant]
     Active Substance: APIXABAN
     Indication: PRODUCT USED FOR UNKNOWN INDICATION
     Route: 065
     Dates: start: 2020
  3. THALOMID [Suspect]
     Active Substance: THALIDOMIDE
     Indication: PLASMA CELL MYELOMA
     Dosage: 50 MILLIGRAM
     Route: 048
     Dates: start: 20161104

REACTIONS (5)
  - Haemoglobin decreased [Unknown]
  - Hypoaesthesia [Not Recovered/Not Resolved]
  - Fall [Recovering/Resolving]
  - Hip fracture [Recovering/Resolving]
  - Ileus [Unknown]

NARRATIVE: CASE EVENT DATE: 2020
